FAERS Safety Report 24430837 (Version 2)
Quarter: 2024Q4

REPORT INFORMATION
  Report Type: Spontaneous
  Country: FR (occurrence: FR)
  Receive Date: 20241014
  Receipt Date: 20241014
  Transmission Date: 20250115
  Serious: Yes (Other)
  Sender: ALEXION PHARMACEUTICALS
  Company Number: FR-AstraZeneca-CH-00714267AM

PATIENT
  Age: 80 Year

DRUGS (8)
  1. DAPAGLIFLOZIN [Suspect]
     Active Substance: DAPAGLIFLOZIN
     Indication: Cardiac failure
     Dosage: 10 MILLIGRAM, QD
  2. LOVENOX [Concomitant]
     Active Substance: ENOXAPARIN SODIUM
  3. KARDEGIC [Concomitant]
     Active Substance: ASPIRIN DL-LYSINE
  4. UNSPECIFIED INGREDIENT [Concomitant]
     Active Substance: UNSPECIFIED INGREDIENT
  5. BISOPROLOL [Concomitant]
     Active Substance: BISOPROLOL\BISOPROLOL FUMARATE
  6. ENTRESTO [Concomitant]
     Active Substance: SACUBITRIL\VALSARTAN
  7. FUROSEMIDE [Suspect]
     Active Substance: FUROSEMIDE
  8. PREDNISONE [Concomitant]
     Active Substance: PREDNISONE

REACTIONS (9)
  - Bladder hypertrophy [Not Recovered/Not Resolved]
  - Gallbladder polyp [Unknown]
  - Arrhythmia [Unknown]
  - Intervertebral discitis [Unknown]
  - Thyroid mass [Unknown]
  - Metastases to lung [Unknown]
  - General physical health deterioration [Unknown]
  - Treatment noncompliance [Unknown]
  - Disease progression [Unknown]
